FAERS Safety Report 9937614 (Version 1)
Quarter: 2014Q1

REPORT INFORMATION
  Report Type: Report from Study
  Country: US (occurrence: US)
  Receive Date: 20140303
  Receipt Date: 20140303
  Transmission Date: 20141002
  Serious: Yes (Other)
  Sender: FDA-Public Use
  Company Number: US-ROCHE-1351476

PATIENT
  Age: 39 Year
  Sex: Female
  Weight: 98.06 kg

DRUGS (3)
  1. HERCEPTIN [Suspect]
     Indication: BREAST CANCER
     Dosage: ROUTE:PORT INFUSION
     Route: 065
     Dates: start: 20130819, end: 20131126
  2. TAXOL [Concomitant]
     Dosage: ROUTE:PORT INFUSION
     Route: 065
     Dates: start: 20130819, end: 20131126
  3. LISINOPRIL [Concomitant]
     Indication: BLOOD PRESSURE
     Route: 048
     Dates: start: 201309

REACTIONS (2)
  - Blood pressure increased [Recovered/Resolved]
  - Mastectomy [Not Recovered/Not Resolved]
